FAERS Safety Report 20455291 (Version 1)
Quarter: 2022Q1

REPORT INFORMATION
  Report Type: Spontaneous
  Country: US (occurrence: None)
  Receive Date: 20220209
  Receipt Date: 20220209
  Transmission Date: 20220423
  Serious: No
  Sender: FDA-Public Use
  Company Number: None

PATIENT
  Age: 48 Year

DRUGS (1)
  1. KETAMINE [Suspect]
     Active Substance: KETAMINE
     Indication: Product used for unknown indication

REACTIONS (4)
  - Device infusion issue [None]
  - Incorrect drug administration rate [None]
  - Incorrect dose administered by device [None]
  - Device information output issue [None]
